FAERS Safety Report 20108678 (Version 2)
Quarter: 2021Q4

REPORT INFORMATION
  Report Type: Report from Study
  Country: US (occurrence: US)
  Receive Date: 20211124
  Receipt Date: 20211206
  Transmission Date: 20220303
  Serious: Yes (Death)
  Sender: FDA-Public Use
  Company Number: US-JNJFOC-20211134768

PATIENT
  Age: 43 Year
  Sex: Male

DRUGS (3)
  1. SPRAVATO [Suspect]
     Active Substance: ESKETAMINE
     Indication: Depression
     Dosage: 1 DOSE
     Dates: start: 20201022, end: 20201022
  2. SPRAVATO [Suspect]
     Active Substance: ESKETAMINE
     Dosage: 40 DOSES
     Dates: start: 20201026, end: 20210903
  3. SPRAVATO [Suspect]
     Active Substance: ESKETAMINE
     Dosage: 1 DOSE
     Dates: start: 20210909, end: 20210909

REACTIONS (1)
  - Death [Fatal]
